FAERS Safety Report 17223775 (Version 1)
Quarter: 2020Q1

REPORT INFORMATION
  Report Type: Spontaneous
  Country: US (occurrence: US)
  Receive Date: 20200102
  Receipt Date: 20200102
  Transmission Date: 20200409
  Serious: No
  Sender: FDA-Public Use
  Company Number: US-LEADING PHARMA, LLC-2078415

PATIENT
  Sex: Female

DRUGS (1)
  1. IMIPRAMINE HYDROCHLORIDE. [Suspect]
     Active Substance: IMIPRAMINE HYDROCHLORIDE
     Indication: PRODUCT USED FOR UNKNOWN INDICATION
     Route: 048

REACTIONS (1)
  - Wrong technique in product usage process [Unknown]
